FAERS Safety Report 6299319-1 (Version None)
Quarter: 2009Q3

REPORT INFORMATION
  Report Type: 
  Country: None (occurrence: None)
  Receive Date: 20090803
  Receipt Date: 20090715
  Transmission Date: 20100115
  Serious: Yes (Hospitalization)
  Sender: FDA-Public Use
  Company Number: 2008AL008792

PATIENT
  Age: 71 Year
  Sex: Female

DRUGS (23)
  1. DIGOXIN [Suspect]
     Dosage: 0.25MG, DAILY, PO
  2. COREG [Concomitant]
  3. BACTRIM [Concomitant]
  4. ZAROXOLYN [Concomitant]
  5. PLAVIX [Concomitant]
  6. ZYRTEC [Concomitant]
  7. LASIX [Concomitant]
  8. SIMVASTATIN [Concomitant]
  9. GABAPENTIN [Concomitant]
  10. MICARDIS [Concomitant]
  11. PRILOSEC [Concomitant]
  12. SPIRONOLACTONE [Concomitant]
  13. ASPIRIN [Concomitant]
  14. MELOXICAM [Concomitant]
  15. NOVOLOG [Concomitant]
  16. REQUIP [Concomitant]
  17. FLUOXETINE [Concomitant]
  18. AMITRIPTYLINE [Concomitant]
  19. METHOCARBAMOL [Concomitant]
  20. TRAMADOL [Concomitant]
  21. TEMAZEPAM [Concomitant]
  22. LORATADINE [Concomitant]
  23. METOLAZONE [Concomitant]

REACTIONS (13)
  - ANXIETY [None]
  - BLINDNESS [None]
  - CONFUSIONAL STATE [None]
  - DYSPNOEA [None]
  - GENERAL PHYSICAL HEALTH DETERIORATION [None]
  - HEART RATE DECREASED [None]
  - INJURY [None]
  - MALAISE [None]
  - PAIN [None]
  - SENSORY DISTURBANCE [None]
  - SPEECH DISORDER [None]
  - THERAPEUTIC AGENT TOXICITY [None]
  - UNEVALUABLE EVENT [None]
